FAERS Safety Report 6607593-4 (Version None)
Quarter: 2010Q1

REPORT INFORMATION
  Report Type: 
  Country: None (occurrence: None)
  Receive Date: 20100301
  Receipt Date: 20100223
  Transmission Date: 20100710
  Serious: Yes (Other)
  Sender: FDA-Public Use
  Company Number: CHPA2010US03943

PATIENT
  Age: 45 Month
  Sex: Female
  Weight: 16.78 kg

DRUGS (3)
  1. MAALOX MS TOTAL STOMACH RELIEF [Suspect]
     Indication: ABDOMINAL PAIN UPPER
     Dosage: 3 TSP, PRN
     Route: 048
  2. TYLENOL [Suspect]
  3. IBUPROFEN (ADVIL) [Suspect]

REACTIONS (4)
  - DRUG INEFFECTIVE FOR UNAPPROVED INDICATION [None]
  - INCORRECT DOSE ADMINISTERED [None]
  - OVERDOSE [None]
  - PNEUMONIA [None]
